FAERS Safety Report 17372197 (Version 1)
Quarter: 2020Q1

REPORT INFORMATION
  Report Type: Spontaneous
  Country: CH (occurrence: CH)
  Receive Date: 20200205
  Receipt Date: 20200205
  Transmission Date: 20200409
  Serious: Yes (Life-Threatening, Hospitalization, Other)
  Sender: FDA-Public Use
  Company Number: CH-ELI_LILLY_AND_COMPANY-CH202001013704

PATIENT
  Age: 73 Year
  Sex: Female

DRUGS (4)
  1. PERINDOPRIL SANDOZ [Concomitant]
     Active Substance: PERINDOPRIL
     Dosage: 2 MG, UNKNOWN
     Route: 048
  2. HUMALOG [Suspect]
     Active Substance: INSULIN LISPRO
     Indication: TYPE 1 DIABETES MELLITUS
     Dosage: 1 DOSAGE FORM, PRN
     Route: 058
     Dates: start: 2013, end: 20191206
  3. CALCIMAGON D3 [Concomitant]
     Active Substance: CALCIUM\CHOLECALCIFEROL
     Dosage: 1 DOSAGE FORM, UNK
     Route: 048
  4. ROSUVASTATIN MEPHA LACTAB [Concomitant]
     Active Substance: ROSUVASTATIN CALCIUM
     Dosage: 20 MG, UNKNOWN
     Route: 048

REACTIONS (11)
  - Diabetic ketoacidosis [Recovered/Resolved]
  - Diabetic coma [Recovered/Resolved]
  - Electrolyte imbalance [Unknown]
  - Vomiting [Unknown]
  - Renal impairment [Unknown]
  - Hyperlactacidaemia [Unknown]
  - Dehydration [Unknown]
  - Feeding disorder [Unknown]
  - Hypercalcaemia [Unknown]
  - Hepatic enzyme increased [Unknown]
  - Blood creatinine increased [Unknown]

NARRATIVE: CASE EVENT DATE: 20191205
